FAERS Safety Report 16315126 (Version 3)
Quarter: 2019Q3

REPORT INFORMATION
  Report Type: Spontaneous
  Country: RO (occurrence: RO)
  Receive Date: 20190515
  Receipt Date: 20190912
  Transmission Date: 20191004
  Serious: Yes (Other)
  Sender: FDA-Public Use
  Company Number: RO-PFIZER INC-2019151558

PATIENT
  Age: 73 Year
  Sex: Male
  Weight: 100 kg

DRUGS (8)
  1. NORVASC [Concomitant]
     Active Substance: AMLODIPINE BESYLATE
     Dosage: 10 MG, DAILY (IN MORNING)
  2. FOLIC ACID. [Concomitant]
     Active Substance: FOLIC ACID
     Dosage: 5 MG, 1X/DAY, MORNING
  3. TENAXUM [Concomitant]
     Active Substance: RILMENIDINE
     Dosage: 1 MG, DAILY (IN MORNING)
  4. FARCOVIT [Concomitant]
     Dosage: UNK, 1X/DAY, MORNING
  5. SUTENT [Suspect]
     Active Substance: SUNITINIB MALATE
     Indication: METASTATIC RENAL CELL CARCINOMA
     Dosage: 50 MG, UNK
     Dates: start: 20170301, end: 20190418
  6. BINOCRIT [Concomitant]
     Active Substance: ERYTHROPOIETIN
     Dosage: 2 VIALS, WEEKLY IN HEMODIALYSIS
  7. ACCUPRO [Concomitant]
     Active Substance: QUINAPRIL HYDROCHLORIDE
     Dosage: 10 MG, DAILY
  8. EUTHYROX [Concomitant]
     Active Substance: LEVOTHYROXINE SODIUM
     Dosage: 125 UG, UNK (IN MORNING)

REACTIONS (4)
  - Pyelonephritis [Unknown]
  - Neoplasm progression [Unknown]
  - Renal impairment [Unknown]
  - Polyuria [Unknown]

NARRATIVE: CASE EVENT DATE: 20190401
